FAERS Safety Report 6899918-X (Version None)
Quarter: 2010Q3

REPORT INFORMATION
  Report Type: 
  Country: None (occurrence: None)
  Receive Date: 20100708
  Receipt Date: 20100506
  Transmission Date: 20110219
  Serious: Yes (Other)
  Sender: FDA-Public Use
  Company Number: 2010058077

PATIENT
  Age: 47 Year
  Sex: Female
  Weight: 61 kg

DRUGS (10)
  1. CHANTIX [Suspect]
     Indication: SMOKING CESSATION THERAPY
     Dates: start: 20080101, end: 20100201
  2. ZOLOFT [Concomitant]
  3. FLEXERIL [Concomitant]
  4. PROTONIX [Concomitant]
  5. SUMATRIPTAN SUCCINATE (IMITREX) [Concomitant]
  6. ASPIRIN [Concomitant]
  7. XOPENEX [Concomitant]
  8. AQUANIL (TIMOLO MALEATE) [Concomitant]
  9. KLONOPIN [Concomitant]
  10. VITAMIN D [Concomitant]

REACTIONS (2)
  - ABDOMINAL PAIN [None]
  - PANCREATITIS [None]
